FAERS Safety Report 19703517 (Version 1)
Quarter: 2021Q3

REPORT INFORMATION
  Report Type: Spontaneous
  Country: DE (occurrence: DE)
  Receive Date: 20210816
  Receipt Date: 20210816
  Transmission Date: 20211014
  Serious: Yes (Other)
  Sender: FDA-Public Use
  Company Number: DE-BAUSCH-BL-2021-027536

PATIENT
  Age: 82 Year
  Sex: Female

DRUGS (3)
  1. DEXAMETHASONE. [Suspect]
     Active Substance: DEXAMETHASONE
     Indication: PLASMA CELL MYELOMA RECURRENT
     Route: 065
     Dates: start: 201911
  2. LENALIDOMIDE [Suspect]
     Active Substance: LENALIDOMIDE
     Indication: PLASMA CELL MYELOMA RECURRENT
     Dosage: SLOW UP DOSING TO 15 MG
     Route: 065
     Dates: start: 201911
  3. DARZALEX [Suspect]
     Active Substance: DARATUMUMAB
     Indication: PLASMA CELL MYELOMA
     Route: 042
     Dates: start: 201911

REACTIONS (5)
  - Plasma cell myeloma [Unknown]
  - Neutropenia [Unknown]
  - Thrombocytopenia [Unknown]
  - Monoclonal immunoglobulin present [Unknown]
  - Rash [Unknown]

NARRATIVE: CASE EVENT DATE: 2019
